FAERS Safety Report 13372977 (Version 1)
Quarter: 2017Q1

REPORT INFORMATION
  Report Type: Spontaneous
  Country: US (occurrence: US)
  Receive Date: 20170325
  Receipt Date: 20170325
  Transmission Date: 20170429
  Serious: Yes (Life-Threatening, Hospitalization)
  Sender: FDA-Public Use
  Company Number: None

PATIENT
  Age: 36 Year
  Sex: Female
  Weight: 122 kg

DRUGS (5)
  1. ATENOLOL (TENORMIN) [Concomitant]
  2. MULTIPLE MINERALS [Concomitant]
  3. ALYACEN [Suspect]
     Active Substance: ETHINYL ESTRADIOL\NORETHINDRONE
     Indication: CONTRACEPTION
     Route: 048
  4. CYMBALTA [Concomitant]
     Active Substance: DULOXETINE HYDROCHLORIDE
  5. LYRICA [Concomitant]
     Active Substance: PREGABALIN

REACTIONS (3)
  - Pulmonary embolism [None]
  - Peripheral swelling [None]
  - Muscle spasms [None]

NARRATIVE: CASE EVENT DATE: 20160518
